FAERS Safety Report 21235692 (Version 1)
Quarter: 2022Q3

REPORT INFORMATION
  Report Type: Spontaneous
  Country: US (occurrence: US)
  Receive Date: 20220821
  Receipt Date: 20220821
  Transmission Date: 20221026
  Serious: Yes (Hospitalization)
  Sender: FDA-Public Use
  Company Number: US-SA-SAC20220817002268

PATIENT
  Sex: Female

DRUGS (2)
  1. DUPIXENT [Suspect]
     Active Substance: DUPILUMAB
     Indication: Asthma
     Dosage: 300 MG, QOW
     Route: 058
     Dates: start: 20211222
  2. TETANUS TOXOIDS [Suspect]
     Active Substance: TETANUS TOXOIDS
     Indication: Immunisation
     Route: 065

REACTIONS (1)
  - Drug hypersensitivity [Unknown]
